FAERS Safety Report 4968543-X (Version None)
Quarter: 2006Q2

REPORT INFORMATION
  Report Type: 
  Country: None (occurrence: None)
  Receive Date: 20060410
  Receipt Date: 20050321
  Transmission Date: 20061013
  Serious: Yes (Hospitalization)
  Sender: FDA-Public Use
  Company Number: NL-SANOFI-SYNTHELABO-D01200502168

PATIENT
  Sex: Female
  Weight: 64 kg

DRUGS (2)
  1. CLOPIDOGREL [Suspect]
     Indication: ATRIAL FIBRILLATION
     Route: 048
     Dates: start: 20040821
  2. ASPIRIN [Concomitant]
     Indication: ATRIAL FIBRILLATION
     Dosage: 80 MG
     Route: 048
     Dates: start: 20040821

REACTIONS (2)
  - ISCHAEMIC STROKE [None]
  - MICROCYTIC ANAEMIA [None]
